FAERS Safety Report 5876604-6 (Version None)
Quarter: 2008Q3

REPORT INFORMATION
  Report Type: 
  Country: None (occurrence: None)
  Receive Date: 20080910
  Receipt Date: 20080909
  Transmission Date: 20090109
  Serious: Yes (Other)
  Sender: FDA-Public Use
  Company Number: GB-RB-000012-08

PATIENT
  Age: 27 Year
  Sex: Male

DRUGS (6)
  1. SUBUTEX [Suspect]
     Indication: DRUG WITHDRAWAL SYNDROME
     Route: 060
     Dates: start: 20060410, end: 20071101
  2. SUBUTEX [Suspect]
     Route: 060
     Dates: start: 20071101, end: 20071201
  3. SUBUTEX [Suspect]
     Route: 060
     Dates: start: 20071201
  4. MIRTAZAPINE [Suspect]
     Indication: DEPRESSION
     Dosage: DOSING AND FREQUENCY UNKNOWN
     Route: 065
  5. HEROIN [Concomitant]
     Indication: DRUG USE FOR UNKNOWN INDICATION
     Dosage: DOSAGE AND FREQUENCY UNKNOWN
     Route: 065
  6. DIAZEPAM [Concomitant]
     Indication: DRUG USE FOR UNKNOWN INDICATION
     Dosage: DOSAGE AND FREQUENCY UNKNOWN
     Route: 065

REACTIONS (7)
  - AGITATION [None]
  - LOGORRHOEA [None]
  - MANIA [None]
  - POOR QUALITY SLEEP [None]
  - PSYCHOMOTOR HYPERACTIVITY [None]
  - RESTLESSNESS [None]
  - SUBSTANCE ABUSE [None]
